FAERS Safety Report 15865716 (Version 1)
Quarter: 2019Q1

REPORT INFORMATION
  Report Type: Report from Study
  Country: US (occurrence: US)
  Receive Date: 20190125
  Receipt Date: 20190125
  Transmission Date: 20190417
  Serious: Yes (Hospitalization)
  Sender: FDA-Public Use
  Company Number: US-ROCHE-2245098

PATIENT
  Sex: Male
  Weight: 75.36 kg

DRUGS (1)
  1. ESBRIET [Suspect]
     Active Substance: PIRFENIDONE
     Indication: IDIOPATHIC PULMONARY FIBROSIS
     Route: 065

REACTIONS (4)
  - Heart rate increased [Recovered/Resolved]
  - Weight decreased [Unknown]
  - Asthenia [Unknown]
  - Carbon dioxide increased [Unknown]
